FAERS Safety Report 9362032 (Version 1)
Quarter: 2013Q2

REPORT INFORMATION
  Report Type: Spontaneous
  Country: US (occurrence: US)
  Receive Date: 20130621
  Receipt Date: 20130621
  Transmission Date: 20140414
  Serious: Yes (Other)
  Sender: FDA-Public Use
  Company Number: US-WATSON-2013-10696

PATIENT
  Age: 29 Year
  Sex: Female

DRUGS (1)
  1. NEXT CHOICE ONE DOSE (WATSON LABORATORIES) [Suspect]
     Indication: POST COITAL CONTRACEPTION
     Dosage: ^TAKEN LESS THAN 4 HOURS AFTER UNPROTECTED SEX^
     Route: 048

REACTIONS (2)
  - Ectopic pregnancy [Unknown]
  - Drug ineffective [Not Recovered/Not Resolved]
